FAERS Safety Report 9463146 (Version 1)
Quarter: 2013Q3

REPORT INFORMATION
  Report Type: Spontaneous
  Country: IT (occurrence: IT)
  Receive Date: 20130817
  Receipt Date: 20130817
  Transmission Date: 20140515
  Serious: Yes (Hospitalization)
  Sender: FDA-Public Use
  Company Number: IT-ACCORD-018956

PATIENT
  Age: 50 Year
  Sex: Female

DRUGS (4)
  1. GEMCITABINE [Suspect]
     Indication: PANCREATIC NEOPLASM
     Route: 042
     Dates: start: 20130101, end: 20130228
  2. OXALIPLATIN [Concomitant]
  3. 5-FU [Concomitant]
  4. IRINOTECAN [Concomitant]

REACTIONS (3)
  - Pain [Not Recovered/Not Resolved]
  - Chills [Not Recovered/Not Resolved]
  - Pyrexia [Not Recovered/Not Resolved]
